FAERS Safety Report 7438996-6 (Version None)
Quarter: 2011Q2

REPORT INFORMATION
  Report Type: 
  Country: None (occurrence: None)
  Receive Date: 20110427
  Receipt Date: 20110418
  Transmission Date: 20111010
  Serious: Yes (Hospitalization, Other)
  Sender: FDA-Public Use
  Company Number: US-US-EMD SERONO, INC.-233164J10USA

PATIENT
  Sex: Female
  Weight: 95 kg

DRUGS (4)
  1. REBIF [Suspect]
     Route: 058
     Dates: start: 20100401, end: 20100901
  2. REBIF [Suspect]
     Route: 058
     Dates: start: 20100301, end: 20100402
  3. REBIF [Suspect]
     Indication: MULTIPLE SCLEROSIS
     Route: 058
     Dates: start: 20100205
  4. REBIF [Suspect]
     Route: 058
     Dates: start: 20100201

REACTIONS (8)
  - SINUSITIS [None]
  - SIGMOIDITIS [None]
  - WOUND INFECTION STAPHYLOCOCCAL [None]
  - LARGE INTESTINE PERFORATION [None]
  - POSTOPERATIVE WOUND COMPLICATION [None]
  - DIVERTICULITIS [None]
  - HEADACHE [None]
  - RETCHING [None]
